FAERS Safety Report 5490867-0 (Version None)
Quarter: 2007Q4

REPORT INFORMATION
  Report Type: 
  Country: None (occurrence: None)
  Receive Date: 20071019
  Receipt Date: 20071008
  Transmission Date: 20080405
  Serious: Yes (Other)
  Sender: FDA-Public Use
  Company Number: US-ROCHE-524119

PATIENT
  Age: 23 Year
  Sex: Female

DRUGS (2)
  1. INVIRASE [Suspect]
     Indication: ACUTE HIV INFECTION
     Dosage: TOTAL DAILY DOSE:  600MG/300MG
     Route: 048
     Dates: start: 20071004
  2. EPZICOM [Suspect]
     Indication: ACUTE HIV INFECTION
     Route: 048
     Dates: start: 20071004

REACTIONS (1)
  - COMPLICATION OF PREGNANCY [None]
